FAERS Safety Report 4462319-8 (Version None)
Quarter: 2004Q3

REPORT INFORMATION
  Report Type: 
  Country: None (occurrence: None)
  Receive Date: 20040929
  Receipt Date: 20040804
  Transmission Date: 20050211
  Serious: Yes (Other)
  Sender: FDA-Public Use
  Company Number: FR-BRISTOL-MYERS SQUIBB COMPANY-12714960

PATIENT
  Age: 41 Year
  Sex: Female

DRUGS (10)
  1. ENDOXAN [Suspect]
     Route: 040
     Dates: start: 20030101, end: 20040304
  2. COLCHICINE [Suspect]
     Dates: start: 20040401
  3. LIORESAL [Concomitant]
  4. LAROXYL [Concomitant]
  5. DEROXAT [Concomitant]
  6. CORTANCYL [Concomitant]
  7. FOSAMAX [Concomitant]
  8. DIFFU-K [Concomitant]
  9. NEURONTIN [Concomitant]
  10. LAMICTAL [Concomitant]
     Dates: start: 20040507

REACTIONS (2)
  - ABORTION INDUCED [None]
  - PREGNANCY [None]
